FAERS Safety Report 4810316-2 (Version None)
Quarter: 2005Q4

REPORT INFORMATION
  Report Type: 
  Country: None (occurrence: None)
  Receive Date: 20051024
  Receipt Date: 20051010
  Transmission Date: 20060501
  Serious: Yes (Hospitalization)
  Sender: FDA-Public Use
  Company Number: 2005014442

PATIENT
  Age: 56 Year
  Sex: Female

DRUGS (4)
  1. LIPITOR [Suspect]
     Indication: ILL-DEFINED DISORDER
     Dosage: 80 MG (80 MG, 1 IN 1D), ORAL
     Route: 048
     Dates: start: 20040901
  2. WARFARIN SODIUM [Concomitant]
  3. IDO-E (TOCOPHERYL ACETATE) [Concomitant]
  4. TRI B (COBAMAMIDE, PYRIDOXINE, THIAMINE) [Concomitant]

REACTIONS (3)
  - ANXIETY [None]
  - DYSTONIA [None]
  - MUSCLE SPASMS [None]
